FAERS Safety Report 13506079 (Version 1)
Quarter: 2017Q2

REPORT INFORMATION
  Report Type: Spontaneous
  Country: US (occurrence: US)
  Receive Date: 20170502
  Receipt Date: 20170502
  Transmission Date: 20170830
  Serious: Yes (Hospitalization)
  Sender: FDA-Public Use
  Company Number: US-ROCHE-1209535

PATIENT
  Sex: Female

DRUGS (20)
  1. GEMZAR [Suspect]
     Active Substance: GEMCITABINE HYDROCHLORIDE
     Indication: OVARIAN CANCER STAGE IV
     Dosage: 1 CYCLE
     Route: 065
     Dates: start: 20111011, end: 20111011
  2. CISPLATIN. [Concomitant]
     Active Substance: CISPLATIN
     Dosage: LAST CYCLE ON 18/JUL/2012
     Route: 065
     Dates: start: 20120103
  3. AVASTIN [Suspect]
     Active Substance: BEVACIZUMAB
     Indication: OVARIAN CANCER STAGE IV
     Route: 065
     Dates: end: 20110809
  4. DOXIL [Suspect]
     Active Substance: DOXORUBICIN HYDROCHLORIDE
     Indication: OVARIAN CANCER STAGE IV
     Route: 065
     Dates: start: 20120925
  5. ABRAXANE [Concomitant]
     Active Substance: PACLITAXEL
  6. AVASTIN [Suspect]
     Active Substance: BEVACIZUMAB
     Route: 065
     Dates: start: 20120925
  7. GEMZAR [Suspect]
     Active Substance: GEMCITABINE HYDROCHLORIDE
     Route: 065
     Dates: start: 20120808
  8. TAXOTERE [Concomitant]
     Active Substance: DOCETAXEL
  9. ALTRETAMINE [Concomitant]
     Active Substance: ALTRETAMINE
  10. TOPOTECAN [Suspect]
     Active Substance: TOPOTECAN HYDROCHLORIDE
     Indication: OVARIAN CANCER STAGE IV
     Route: 065
     Dates: end: 20110809
  11. CYCLOPHOSPHAMIDE. [Concomitant]
     Active Substance: CYCLOPHOSPHAMIDE
  12. FLUOROURACIL. [Concomitant]
     Active Substance: FLUOROURACIL
  13. AVASTIN [Suspect]
     Active Substance: BEVACIZUMAB
     Route: 065
     Dates: start: 20120808
  14. METHOTREXATE. [Concomitant]
     Active Substance: METHOTREXATE
  15. DEXTROSE, SODIUM CHLORIDE, AND POTASSIUM CHLORIDE [Concomitant]
     Active Substance: DEXTROSE\POTASSIUM CHLORIDE\SODIUM CHLORIDE
     Route: 050
  16. CARBOPLATIN. [Concomitant]
     Active Substance: CARBOPLATIN
  17. HEPARIN [Concomitant]
     Active Substance: HEPARIN SODIUM
     Route: 050
     Dates: start: 20130313
  18. AVASTIN [Suspect]
     Active Substance: BEVACIZUMAB
     Dosage: 1 CYCLE
     Route: 065
     Dates: start: 20111011, end: 20111011
  19. DEXTROSE 5% 0.9% NACL [Concomitant]
     Dosage: WITH KCL, 100 ML/HR
     Route: 042
     Dates: start: 20130313
  20. TAMOXIFEN [Concomitant]
     Active Substance: TAMOXIFEN
     Route: 065
     Dates: start: 20130123

REACTIONS (8)
  - Diarrhoea [Unknown]
  - Carbohydrate antigen 125 increased [Unknown]
  - Nausea [Unknown]
  - Vomiting [Unknown]
  - Swelling [Unknown]
  - Sensory disturbance [Unknown]
  - Abdominal distension [Unknown]
  - Disease progression [Unknown]
